FAERS Safety Report 7247690-6 (Version None)
Quarter: 2011Q1

REPORT INFORMATION
  Report Type: 
  Country: None (occurrence: None)
  Receive Date: 20110127
  Receipt Date: 20110118
  Transmission Date: 20110831
  Serious: Yes (Other)
  Sender: FDA-Public Use
  Company Number: US-JNJFOC-20101206080

PATIENT
  Sex: Male
  Weight: 80 kg

DRUGS (4)
  1. FLUCONAZOLE [Concomitant]
     Indication: FEBRILE NEUTROPENIA
     Route: 065
  2. DORIBAX [Suspect]
     Indication: FEBRILE NEUTROPENIA
     Route: 041
  3. CEFTAZIDIME [Concomitant]
     Indication: FEBRILE NEUTROPENIA
  4. VANCOMYCIN [Concomitant]
     Indication: FEBRILE NEUTROPENIA

REACTIONS (1)
  - BLOOD BILIRUBIN INCREASED [None]
